FAERS Safety Report 17290667 (Version 3)
Quarter: 2020Q2

REPORT INFORMATION
  Report Type: Spontaneous
  Country: JP (occurrence: JP)
  Receive Date: 20200121
  Receipt Date: 20200409
  Transmission Date: 20200713
  Serious: Yes (Disabling)
  Sender: FDA-Public Use
  Company Number: JP-ROCHE-2485892

PATIENT
  Age: 47 Year
  Sex: Male

DRUGS (118)
  1. XOLAIR [Suspect]
     Active Substance: OMALIZUMAB
     Route: 058
  2. XOLAIR [Suspect]
     Active Substance: OMALIZUMAB
     Route: 058
  3. XOLAIR [Suspect]
     Active Substance: OMALIZUMAB
     Route: 058
  4. XOLAIR [Suspect]
     Active Substance: OMALIZUMAB
     Route: 058
  5. XOLAIR [Suspect]
     Active Substance: OMALIZUMAB
     Route: 058
  6. XOLAIR [Suspect]
     Active Substance: OMALIZUMAB
     Route: 058
  7. XOLAIR [Suspect]
     Active Substance: OMALIZUMAB
     Route: 058
  8. PREDONINE [Suspect]
     Active Substance: PREDNISOLONE
     Route: 048
  9. PREDONINE [Suspect]
     Active Substance: PREDNISOLONE
     Route: 048
  10. PREDONINE [Suspect]
     Active Substance: PREDNISOLONE
     Route: 048
  11. PREDONINE [Suspect]
     Active Substance: PREDNISOLONE
     Route: 048
  12. PREDONINE [Suspect]
     Active Substance: PREDNISOLONE
     Route: 048
  13. MEPOLIZUMAB [Concomitant]
     Active Substance: MEPOLIZUMAB
     Dosage: 100 MG, 4W
     Route: 065
  14. MEPOLIZUMAB [Concomitant]
     Active Substance: MEPOLIZUMAB
     Dosage: 100 MG, 4W
     Route: 065
  15. GASCON [Concomitant]
     Active Substance: DIMETHICONE
     Indication: GASTRITIS
     Dosage: 40 MG
     Route: 048
  16. XOLAIR [Suspect]
     Active Substance: OMALIZUMAB
     Route: 058
  17. XOLAIR [Suspect]
     Active Substance: OMALIZUMAB
     Route: 058
  18. XOLAIR [Suspect]
     Active Substance: OMALIZUMAB
     Route: 058
  19. XOLAIR [Suspect]
     Active Substance: OMALIZUMAB
     Route: 058
  20. PREDONINE [Suspect]
     Active Substance: PREDNISOLONE
     Route: 048
  21. PREDONINE [Suspect]
     Active Substance: PREDNISOLONE
     Route: 048
  22. IMURAN [Concomitant]
     Active Substance: AZATHIOPRINE
     Indication: EOSINOPHILIC GRANULOMATOSIS WITH POLYANGIITIS
     Dosage: 100 MG
     Route: 048
  23. MEPOLIZUMAB [Concomitant]
     Active Substance: MEPOLIZUMAB
     Dosage: 100 MG, 4W
     Route: 065
  24. MEPOLIZUMAB [Concomitant]
     Active Substance: MEPOLIZUMAB
     Dosage: 300 MG, 4W
     Route: 065
  25. XOLAIR [Suspect]
     Active Substance: OMALIZUMAB
     Route: 058
  26. XOLAIR [Suspect]
     Active Substance: OMALIZUMAB
     Route: 058
  27. XOLAIR [Suspect]
     Active Substance: OMALIZUMAB
     Route: 058
  28. XOLAIR [Suspect]
     Active Substance: OMALIZUMAB
     Route: 058
  29. PREDONINE [Suspect]
     Active Substance: PREDNISOLONE
     Route: 048
  30. PREDONINE [Suspect]
     Active Substance: PREDNISOLONE
     Route: 048
  31. PREDONINE [Suspect]
     Active Substance: PREDNISOLONE
     Route: 048
  32. PREDONINE [Suspect]
     Active Substance: PREDNISOLONE
     Route: 048
  33. IMURAN [Concomitant]
     Active Substance: AZATHIOPRINE
     Dosage: 50 MG
     Route: 048
  34. MEPOLIZUMAB [Concomitant]
     Active Substance: MEPOLIZUMAB
     Dosage: 100 MG, 4W
     Route: 065
  35. MEPOLIZUMAB [Concomitant]
     Active Substance: MEPOLIZUMAB
     Dosage: 100 MG, 4W
     Route: 065
  36. MEPOLIZUMAB [Concomitant]
     Active Substance: MEPOLIZUMAB
     Dosage: 100 MG, 4W
     Route: 065
  37. MEPOLIZUMAB [Concomitant]
     Active Substance: MEPOLIZUMAB
     Dosage: 300 MG, 4W
     Route: 065
  38. MEPOLIZUMAB [Concomitant]
     Active Substance: MEPOLIZUMAB
     Dosage: 300 MG, 4W
     Route: 065
  39. BAKTAR [Concomitant]
     Active Substance: SULFAMETHOXAZOLE\TRIMETHOPRIM
     Indication: PROPHYLAXIS
     Dosage: 1 DF
     Route: 048
  40. XOLAIR [Suspect]
     Active Substance: OMALIZUMAB
     Route: 058
  41. XOLAIR [Suspect]
     Active Substance: OMALIZUMAB
     Route: 058
  42. XOLAIR [Suspect]
     Active Substance: OMALIZUMAB
     Route: 058
  43. XOLAIR [Suspect]
     Active Substance: OMALIZUMAB
     Route: 058
  44. XOLAIR [Suspect]
     Active Substance: OMALIZUMAB
     Route: 058
  45. XOLAIR [Suspect]
     Active Substance: OMALIZUMAB
     Route: 058
  46. XOLAIR [Suspect]
     Active Substance: OMALIZUMAB
     Dosage: TOTAL 58 TIMES ADMINISTERED
     Route: 058
  47. PREDONINE [Suspect]
     Active Substance: PREDNISOLONE
     Indication: EOSINOPHILIC GRANULOMATOSIS WITH POLYANGIITIS
     Route: 048
  48. PREDONINE [Suspect]
     Active Substance: PREDNISOLONE
     Route: 048
  49. PREDONINE [Suspect]
     Active Substance: PREDNISOLONE
     Route: 048
  50. PREDONINE [Suspect]
     Active Substance: PREDNISOLONE
     Route: 048
  51. MEPOLIZUMAB [Concomitant]
     Active Substance: MEPOLIZUMAB
     Dosage: 100 MG, 4W
     Route: 065
  52. MEPOLIZUMAB [Concomitant]
     Active Substance: MEPOLIZUMAB
     Dosage: 100 MG, 4W
     Route: 065
  53. MEPOLIZUMAB [Concomitant]
     Active Substance: MEPOLIZUMAB
     Dosage: 300 MG, 4W
     Route: 065
  54. MEPOLIZUMAB [Concomitant]
     Active Substance: MEPOLIZUMAB
     Dosage: 300 MG, 4W
     Route: 065
  55. MEPOLIZUMAB [Concomitant]
     Active Substance: MEPOLIZUMAB
     Dosage: 300 MG, 4W
     Route: 065
  56. MEPOLIZUMAB [Concomitant]
     Active Substance: MEPOLIZUMAB
     Dosage: 300 MG, 4W
     Route: 065
  57. MEPOLIZUMAB [Concomitant]
     Active Substance: MEPOLIZUMAB
     Dosage: 300 MG, 4W
     Route: 065
  58. ADOAIR [Concomitant]
     Active Substance: FLUTICASONE PROPIONATE\SALMETEROL XINAFOATE
     Indication: ASTHMA
     Dosage: 250
     Route: 055
  59. XOLAIR [Suspect]
     Active Substance: OMALIZUMAB
     Route: 058
  60. XOLAIR [Suspect]
     Active Substance: OMALIZUMAB
     Route: 058
  61. XOLAIR [Suspect]
     Active Substance: OMALIZUMAB
     Route: 058
  62. XOLAIR [Suspect]
     Active Substance: OMALIZUMAB
     Route: 058
  63. PREDONINE [Suspect]
     Active Substance: PREDNISOLONE
     Route: 048
  64. PREDONINE [Suspect]
     Active Substance: PREDNISOLONE
     Route: 048
  65. PREDONINE [Suspect]
     Active Substance: PREDNISOLONE
     Route: 048
  66. MEPOLIZUMAB [Concomitant]
     Active Substance: MEPOLIZUMAB
     Dosage: 100 MG, 4W
     Route: 065
  67. MEPOLIZUMAB [Concomitant]
     Active Substance: MEPOLIZUMAB
     Dosage: 100 MG, 4W
     Route: 065
  68. LYRICA [Concomitant]
     Active Substance: PREGABALIN
     Indication: HYPOAESTHESIA
     Dosage: 75 MG, BID
     Route: 048
  69. XOLAIR [Suspect]
     Active Substance: OMALIZUMAB
     Route: 058
  70. XOLAIR [Suspect]
     Active Substance: OMALIZUMAB
     Route: 058
  71. XOLAIR [Suspect]
     Active Substance: OMALIZUMAB
     Route: 058
  72. XOLAIR [Suspect]
     Active Substance: OMALIZUMAB
     Route: 058
  73. XOLAIR [Suspect]
     Active Substance: OMALIZUMAB
     Route: 058
  74. XOLAIR [Suspect]
     Active Substance: OMALIZUMAB
     Route: 058
  75. XOLAIR [Suspect]
     Active Substance: OMALIZUMAB
     Route: 058
  76. PREDONINE [Suspect]
     Active Substance: PREDNISOLONE
     Route: 048
  77. PREDONINE [Suspect]
     Active Substance: PREDNISOLONE
     Route: 048
  78. MEPOLIZUMAB [Concomitant]
     Active Substance: MEPOLIZUMAB
     Dosage: 100 MG, 4W
     Route: 065
  79. MEPOLIZUMAB [Concomitant]
     Active Substance: MEPOLIZUMAB
     Dosage: 100 MG, 4W
     Route: 065
  80. MEPOLIZUMAB [Concomitant]
     Active Substance: MEPOLIZUMAB
     Dosage: 300 MG, 4W
     Route: 065
  81. MEPOLIZUMAB [Concomitant]
     Active Substance: MEPOLIZUMAB
     Dosage: 300 MG, 4W
     Route: 065
  82. XOLAIR [Suspect]
     Active Substance: OMALIZUMAB
     Indication: ASTHMA
     Route: 058
     Dates: start: 20140711
  83. XOLAIR [Suspect]
     Active Substance: OMALIZUMAB
     Route: 058
  84. XOLAIR [Suspect]
     Active Substance: OMALIZUMAB
     Route: 058
  85. XOLAIR [Suspect]
     Active Substance: OMALIZUMAB
     Route: 058
  86. XOLAIR [Suspect]
     Active Substance: OMALIZUMAB
     Route: 058
  87. XOLAIR [Suspect]
     Active Substance: OMALIZUMAB
     Route: 058
  88. XOLAIR [Suspect]
     Active Substance: OMALIZUMAB
     Route: 058
  89. XOLAIR [Suspect]
     Active Substance: OMALIZUMAB
     Route: 058
  90. PREDONINE [Suspect]
     Active Substance: PREDNISOLONE
     Indication: CHRONIC EOSINOPHILIC RHINOSINUSITIS
     Route: 048
  91. PREDONINE [Suspect]
     Active Substance: PREDNISOLONE
     Indication: EOSINOPHILIC OTITIS MEDIA
     Route: 048
  92. PREDONINE [Suspect]
     Active Substance: PREDNISOLONE
     Route: 048
  93. PREDONINE [Suspect]
     Active Substance: PREDNISOLONE
     Route: 048
  94. MEPOLIZUMAB [Concomitant]
     Active Substance: MEPOLIZUMAB
     Dosage: 100 MG, 4W
     Route: 065
  95. MEPOLIZUMAB [Concomitant]
     Active Substance: MEPOLIZUMAB
     Dosage: 100 MG, 4W
     Route: 065
  96. MEPOLIZUMAB [Concomitant]
     Active Substance: MEPOLIZUMAB
     Dosage: 300 MG, 4W
     Route: 065
  97. TAKEPRON [Concomitant]
     Active Substance: LANSOPRAZOLE
     Indication: PROPHYLAXIS AGAINST GASTROINTESTINAL ULCER
     Dosage: 15 MG
     Route: 048
  98. XOLAIR [Suspect]
     Active Substance: OMALIZUMAB
     Route: 058
  99. XOLAIR [Suspect]
     Active Substance: OMALIZUMAB
     Route: 058
  100. XOLAIR [Suspect]
     Active Substance: OMALIZUMAB
     Route: 058
  101. XOLAIR [Suspect]
     Active Substance: OMALIZUMAB
     Route: 058
  102. XOLAIR [Suspect]
     Active Substance: OMALIZUMAB
     Route: 058
  103. XOLAIR [Suspect]
     Active Substance: OMALIZUMAB
     Route: 058
  104. XOLAIR [Suspect]
     Active Substance: OMALIZUMAB
     Route: 058
  105. XOLAIR [Suspect]
     Active Substance: OMALIZUMAB
     Route: 058
  106. XOLAIR [Suspect]
     Active Substance: OMALIZUMAB
     Route: 058
  107. PREDONINE [Suspect]
     Active Substance: PREDNISOLONE
     Route: 048
  108. PREDONINE [Suspect]
     Active Substance: PREDNISOLONE
     Route: 048
  109. PREDONINE [Suspect]
     Active Substance: PREDNISOLONE
     Route: 048
  110. MEPOLIZUMAB [Concomitant]
     Active Substance: MEPOLIZUMAB
     Indication: EOSINOPHILIC GRANULOMATOSIS WITH POLYANGIITIS
     Route: 065
  111. MEPOLIZUMAB [Concomitant]
     Active Substance: MEPOLIZUMAB
     Dosage: 100 MG, 4W
     Route: 065
  112. MEPOLIZUMAB [Concomitant]
     Active Substance: MEPOLIZUMAB
     Dosage: 100 MG, 4W
     Route: 065
  113. MEPOLIZUMAB [Concomitant]
     Active Substance: MEPOLIZUMAB
     Dosage: 100 MG, 4W
     Route: 065
  114. MEPOLIZUMAB [Concomitant]
     Active Substance: MEPOLIZUMAB
     Dosage: 100 MG, 4W
     Route: 065
  115. MEPOLIZUMAB [Concomitant]
     Active Substance: MEPOLIZUMAB
     Dosage: 100 MG, 4W
     Route: 065
  116. MEPOLIZUMAB [Concomitant]
     Active Substance: MEPOLIZUMAB
     Dosage: 100 MG, 4W
     Route: 065
  117. MEPOLIZUMAB [Concomitant]
     Active Substance: MEPOLIZUMAB
     Dosage: 300 MG, 4W
     Route: 065
  118. BONALON [Concomitant]
     Active Substance: ALENDRONATE SODIUM
     Indication: OSTEOPOROSIS PROPHYLAXIS
     Dosage: 35 MG, QW
     Route: 048

REACTIONS (1)
  - Osteonecrosis [Recovered/Resolved with Sequelae]
